FAERS Safety Report 8899827 (Version 1)
Quarter: 2012Q4

REPORT INFORMATION
  Report Type: 
  Country: US (occurrence: US)
  Receive Date: 20121108
  Receipt Date: 20121108
  Transmission Date: 20130627
  Serious: No
  Sender: FDA-Public Use
  Company Number: US-AMGEN-USASP2012036785

PATIENT
  Age: 57 Year
  Sex: Female
  Weight: 67.12 kg

DRUGS (13)
  1. ENBREL [Suspect]
     Indication: PRODUCT USED FOR UNKNOWN INDICATION
     Dosage: 50 mg, qwk
     Route: 058
  2. LISINOPRIL [Concomitant]
     Dosage: 10 mg, UNK
  3. HUMULIN R [Concomitant]
     Dosage: UNK
  4. HUMALOG [Concomitant]
  5. PREDNISONE [Concomitant]
  6. SYNTHROID [Concomitant]
     Dosage: 25 mug, UNK
  7. FLUTICASONE [Concomitant]
     Dosage: 50 mug, UNK
  8. FOLIC ACID [Concomitant]
     Dosage: 20 mg, UNK
  9. FLUOXETINE [Concomitant]
     Dosage: 20 mg, UNK
  10. FISH OIL [Concomitant]
     Dosage: UNK
  11. ZYRTEC [Concomitant]
     Dosage: 10 mg, UNK
  12. SIMVASTATIN [Concomitant]
     Dosage: 10 mg, UNK
  13. VITAMIN E                          /00110501/ [Concomitant]
     Dosage: 1000 IU, UNK

REACTIONS (3)
  - Paranasal sinus hypersecretion [Unknown]
  - Upper-airway cough syndrome [Unknown]
  - Infection [Unknown]
